FAERS Safety Report 7595391-7 (Version None)
Quarter: 2011Q2

REPORT INFORMATION
  Report Type: 
  Country: None (occurrence: None)
  Receive Date: 20110620
  Receipt Date: 20110502
  Transmission Date: 20111010
  Serious: Yes (Hospitalization)
  Sender: FDA-Public Use
  Company Number: UTC-006805

PATIENT
  Age: 60 Year
  Sex: Female
  Weight: 62.6 kg

DRUGS (6)
  1. TYVASO [Suspect]
     Indication: PULMONARY HYPERTENSION
     Dosage: 216 MCG (54 MCG, 4 IN 1 D), INHALATION
     Route: 055
     Dates: start: 20101123
  2. TRACLEER [Concomitant]
  3. DIURETICS (DIURETICS) [Concomitant]
  4. POTASSIUM CHLORIDE [Concomitant]
  5. ASPIRIN [Concomitant]
  6. OXYGEN (OXYGEN) [Concomitant]

REACTIONS (1)
  - DISEASE PROGRESSION [None]
